FAERS Safety Report 6348498-6 (Version None)
Quarter: 2009Q3

REPORT INFORMATION
  Report Type: 
  Country: None (occurrence: None)
  Receive Date: 20090911
  Receipt Date: 20071120
  Transmission Date: 20100115
  Serious: Yes (Hospitalization)
  Sender: FDA-Public Use
  Company Number: US-ASTRAZENECA-2006UW21286

PATIENT
  Age: 18266 Day
  Sex: Male
  Weight: 132.4 kg

DRUGS (9)
  1. SEROQUEL [Suspect]
     Indication: BIPOLAR DISORDER
     Dosage: 100 TO 500 MG
     Route: 048
     Dates: start: 20040411
  2. SEROQUEL [Suspect]
     Indication: DEPRESSION
     Dosage: 100 TO 500 MG
     Route: 048
     Dates: start: 20040411
  3. SEROQUEL [Suspect]
     Route: 048
     Dates: start: 20040411
  4. SEROQUEL [Suspect]
     Route: 048
     Dates: start: 20040411
  5. BUPROPION HCL [Suspect]
     Dates: start: 20040411
  6. ZOLOFT [Concomitant]
     Indication: DEPRESSION
     Dates: start: 20040411
  7. DEPAKOTE ER [Concomitant]
     Dosage: 1500 MG - 2000 MG
     Route: 048
     Dates: start: 20040411
  8. DEPAKOTE ER [Concomitant]
     Dates: start: 20040421
  9. TRAZODONE HCL [Concomitant]
     Route: 048
     Dates: start: 20040411

REACTIONS (5)
  - BIPOLAR DISORDER [None]
  - BIPOLAR I DISORDER [None]
  - DIABETES MELLITUS [None]
  - DIABETIC KETOACIDOSIS [None]
  - MANIA [None]
